FAERS Safety Report 17812853 (Version 2)
Quarter: 2020Q2

REPORT INFORMATION
  Report Type: Spontaneous
  Country: CN (occurrence: CN)
  Receive Date: 20200521
  Receipt Date: 20200521
  Transmission Date: 20200714
  Serious: Yes (Hospitalization, Other)
  Sender: FDA-Public Use
  Company Number: CN-JNJFOC-20200519189

PATIENT
  Age: 46 Year
  Sex: Female
  Weight: 35 kg

DRUGS (9)
  1. NADROPARIN CALCIUM [Concomitant]
     Active Substance: NADROPARIN CALCIUM
     Indication: ANTICOAGULANT THERAPY
     Dosage: 0.3 ML, QD
     Route: 058
     Dates: start: 20181204
  2. RIVAROXABAN [Suspect]
     Active Substance: RIVAROXABAN
     Dosage: 10 MG, QD
     Route: 048
     Dates: start: 20181113, end: 20181203
  3. TADALAFIL. [Concomitant]
     Active Substance: TADALAFIL
     Indication: PULMONARY ARTERIAL PRESSURE ABNORMAL
     Dosage: 20 MG, QD
     Dates: start: 20180815, end: 20180828
  4. POTASSIUM [Concomitant]
     Active Substance: POTASSIUM
     Dosage: UNK
     Dates: start: 20180815
  5. NADROPARIN CALCIUM [Concomitant]
     Active Substance: NADROPARIN CALCIUM
     Indication: ANTICOAGULANT THERAPY
     Dosage: 0.3 ML, QD
     Dates: start: 20181018, end: 20181112
  6. NADROPARIN CALCIUM [Concomitant]
     Active Substance: NADROPARIN CALCIUM
     Indication: ANTICOAGULANT THERAPY
     Dosage: 0.3 ML, QD
     Route: 058
     Dates: start: 20181016, end: 20181017
  7. RIVAROXABAN [Suspect]
     Active Substance: RIVAROXABAN
     Indication: PULMONARY HYPERTENSION
     Dosage: 10 MG, QD
     Route: 048
     Dates: start: 20180815, end: 20181015
  8. RIOCIGUAT. [Suspect]
     Active Substance: RIOCIGUAT
     Indication: PULMONARY ARTERIAL HYPERTENSION
     Dosage: UNK
     Route: 048
     Dates: start: 20180828
  9. VITAMIN K1 [Concomitant]
     Active Substance: PHYTONADIONE
     Dosage: 0.5 ML
     Route: 030
     Dates: start: 20181017

REACTIONS (4)
  - Off label use [Unknown]
  - Fibrin D dimer increased [Unknown]
  - Congestive hepatopathy [Unknown]
  - International normalised ratio increased [Recovered/Resolved]

NARRATIVE: CASE EVENT DATE: 201808
